FAERS Safety Report 19426593 (Version 1)
Quarter: 2021Q2

REPORT INFORMATION
  Report Type: Spontaneous
  Country: CA (occurrence: CA)
  Receive Date: 20210616
  Receipt Date: 20210616
  Transmission Date: 20210717
  Serious: Yes (Life-Threatening, Hospitalization, Other)
  Sender: FDA-Public Use
  Company Number: CA-PFIZER INC-2021664948

PATIENT
  Age: 50 Year
  Sex: Male

DRUGS (8)
  1. ALLOPURINOL. [Concomitant]
     Active Substance: ALLOPURINOL
     Indication: CONGENITAL CYSTIC KIDNEY DISEASE
     Dosage: UNK
     Route: 065
  2. VENLAFAXINE [Concomitant]
     Active Substance: VENLAFAXINE HYDROCHLORIDE
     Indication: CONGENITAL CYSTIC KIDNEY DISEASE
     Dosage: UNK
  3. RANITIDINE. [Suspect]
     Active Substance: RANITIDINE
     Indication: ANGIOEDEMA
     Dosage: UNK
     Route: 065
  4. AMLODIPINE BESILATE [Suspect]
     Active Substance: AMLODIPINE BESYLATE
     Dosage: UNK
     Route: 065
  5. DIPHENHYDRAMINE. [Suspect]
     Active Substance: DIPHENHYDRAMINE
     Indication: ANGIOEDEMA
     Dosage: UNK
     Route: 065
  6. EPINEPHRINE. [Suspect]
     Active Substance: EPINEPHRINE
     Indication: ANGIOEDEMA
     Dosage: UNK
     Route: 065
  7. LISINOPRIL. [Suspect]
     Active Substance: LISINOPRIL
     Indication: CONGENITAL CYSTIC KIDNEY DISEASE
     Dosage: UNK
     Route: 048
  8. TOLVAPTAN [Concomitant]
     Active Substance: TOLVAPTAN
     Indication: CONGENITAL CYSTIC KIDNEY DISEASE
     Dosage: UNK

REACTIONS (6)
  - Angioedema [Recovered/Resolved]
  - Eyelid oedema [Recovered/Resolved]
  - Drug ineffective [Recovered/Resolved]
  - Dysarthria [Recovered/Resolved]
  - Face oedema [Recovered/Resolved]
  - Tongue oedema [Recovered/Resolved]
